FAERS Safety Report 5930875-6 (Version None)
Quarter: 2008Q4

REPORT INFORMATION
  Report Type: 
  Country: None (occurrence: None)
  Receive Date: 20081027
  Receipt Date: 20080925
  Transmission Date: 20090506
  Serious: No
  Sender: FDA-Public Use
  Company Number: US-BAYER-200834704NA

PATIENT
  Sex: Female

DRUGS (1)
  1. ANGELIQ [Suspect]

REACTIONS (1)
  - AGITATION [None]
